FAERS Safety Report 10385685 (Version 1)
Quarter: 2014Q3

REPORT INFORMATION
  Report Type: Report from Study
  Country: US (occurrence: US)
  Receive Date: 20140814
  Receipt Date: 20140814
  Transmission Date: 20150326
  Serious: Yes (Death)
  Sender: FDA-Public Use
  Company Number: US-CELGENEUS-163-50794-14081108

PATIENT

DRUGS (2)
  1. VIDAZA [Suspect]
     Active Substance: AZACITIDINE
     Indication: MYELODYSPLASTIC SYNDROME
     Dosage: 50 MILLIGRAM/SQ. METER
     Route: 058
  2. ENTINOSTAT [Suspect]
     Active Substance: ENTINOSTAT
     Indication: MYELODYSPLASTIC SYNDROME
     Dosage: 4 MILLIGRAM/SQ. METER
     Route: 048

REACTIONS (1)
  - Infection [Fatal]
